FAERS Safety Report 6538808-9 (Version None)
Quarter: 2010Q1

REPORT INFORMATION
  Report Type: 
  Country: None (occurrence: None)
  Receive Date: 20100112
  Receipt Date: 20100108
  Transmission Date: 20100710
  Serious: Yes (Death, Hospitalization)
  Sender: FDA-Public Use
  Company Number: 2010SP001716

PATIENT
  Age: 66 Year
  Sex: Female

DRUGS (11)
  1. TEMODAL [Suspect]
     Indication: DRUG USE FOR UNKNOWN INDICATION
     Dosage: 75 MG/M2;QD;PO ; 150 MG/M2;QD;PO ; 1400 MG;ONCE;PO
     Route: 048
     Dates: start: 20090826, end: 20090915
  2. TEMODAL [Suspect]
     Indication: DRUG USE FOR UNKNOWN INDICATION
     Dosage: 75 MG/M2;QD;PO ; 150 MG/M2;QD;PO ; 1400 MG;ONCE;PO
     Route: 048
     Dates: start: 20091014, end: 20091001
  3. TEMODAL [Suspect]
     Indication: DRUG USE FOR UNKNOWN INDICATION
     Dosage: 75 MG/M2;QD;PO ; 150 MG/M2;QD;PO ; 1400 MG;ONCE;PO
     Route: 048
     Dates: start: 20091117, end: 20091117
  4. CORTANCYL [Concomitant]
  5. OMEPRAZOLE [Concomitant]
  6. STABLON [Concomitant]
  7. TRILEPTAL [Concomitant]
  8. DAFALGAN [Concomitant]
  9. FORLAX [Concomitant]
  10. DIFFU K [Concomitant]
  11. CACIT D3 [Concomitant]

REACTIONS (6)
  - ACCIDENTAL OVERDOSE [None]
  - ASTHENIA [None]
  - GENERAL PHYSICAL HEALTH DETERIORATION [None]
  - MALIGNANT MELANOMA [None]
  - MALIGNANT NEOPLASM PROGRESSION [None]
  - PSYCHOMOTOR RETARDATION [None]
